FAERS Safety Report 8847722 (Version 2)
Quarter: 2013Q1

REPORT INFORMATION
  Report Type: Report from Study
  Country: NL (occurrence: NL)
  Receive Date: 20121018
  Receipt Date: 20130307
  Transmission Date: 20140127
  Serious: Yes (Hospitalization)
  Sender: FDA-Public Use
  Company Number: NL-BAXTER-2012BAX019672

PATIENT
  Age: 44 Year
  Sex: Male
  Weight: 93 kg

DRUGS (16)
  1. ENDOXAN I.V., POEDER VOOR OPLOSSING VOOR INJECTIE 200, 500, 1000 MG [Suspect]
     Indication: DIFFUSE LARGE B-CELL LYMPHOMA
     Route: 042
     Dates: start: 20111220, end: 20111220
  2. ENDOXAN I.V., POEDER VOOR OPLOSSING VOOR INJECTIE 200, 500, 1000 MG [Suspect]
     Route: 042
     Dates: start: 20120117
  3. RITUXIMAB [Suspect]
     Indication: DIFFUSE LARGE B-CELL LYMPHOMA
     Route: 042
     Dates: start: 20111220, end: 20111220
  4. RITUXIMAB [Suspect]
     Route: 042
     Dates: start: 20120117
  5. PREDNISONE [Suspect]
     Indication: DIFFUSE LARGE B-CELL LYMPHOMA
     Route: 048
     Dates: start: 20111220, end: 20111224
  6. PREDNISONE [Suspect]
     Route: 048
     Dates: start: 20120117
  7. DOXORUBICIN [Suspect]
     Indication: DIFFUSE LARGE B-CELL LYMPHOMA
     Route: 042
     Dates: start: 20111220, end: 20111220
  8. DOXORUBICIN [Suspect]
     Route: 042
     Dates: start: 20120117
  9. VINCRISTINE [Suspect]
     Indication: DIFFUSE LARGE B-CELL LYMPHOMA
     Route: 042
     Dates: start: 20111220, end: 20111220
  10. VINCRISTINE [Suspect]
     Route: 042
     Dates: start: 20120117
  11. FILGRASTIM [Suspect]
     Indication: DIFFUSE LARGE B-CELL LYMPHOMA
     Route: 058
     Dates: start: 20111221, end: 20111221
  12. FILGRASTIM [Suspect]
     Route: 058
     Dates: start: 20120118
  13. MOVICOLON [Concomitant]
     Indication: CONSTIPATION
     Route: 048
  14. VALGANCICLOVIR [Concomitant]
     Indication: PRODUCT USED FOR UNKNOWN INDICATION
     Route: 048
  15. VALGANCICLOVIR [Concomitant]
     Route: 048
     Dates: start: 20111003, end: 20111227
  16. COTRIMOXAZOLE [Concomitant]
     Indication: PRODUCT USED FOR UNKNOWN INDICATION
     Route: 048
     Dates: start: 20111003, end: 20111227

REACTIONS (3)
  - Febrile neutropenia [Recovered/Resolved]
  - Cough [Recovered/Resolved]
  - Febrile neutropenia [Recovered/Resolved]
